FAERS Safety Report 19321365 (Version 3)
Quarter: 2021Q4

REPORT INFORMATION
  Report Type: Report from Study
  Country: ES (occurrence: ES)
  Receive Date: 20210527
  Receipt Date: 20211207
  Transmission Date: 20220304
  Serious: Yes (Hospitalization, Other)
  Sender: FDA-Public Use
  Company Number: ES-BRISTOL-MYERS SQUIBB COMPANY-BMS-2021-031838

PATIENT
  Age: 59 Year
  Sex: Male
  Weight: 109 kg

DRUGS (5)
  1. NIVOLUMAB [Suspect]
     Active Substance: NIVOLUMAB
     Indication: Colorectal cancer
     Dosage: 240 MILLIGRAM
     Route: 042
     Dates: start: 20210224, end: 20210316
  2. IPILIMUMAB [Suspect]
     Active Substance: IPILIMUMAB
     Indication: Colorectal cancer
     Dosage: 109 MILLIGRAM
     Route: 042
     Dates: start: 20210224, end: 20210316
  3. NEBIVOLOL [Concomitant]
     Active Substance: NEBIVOLOL
     Indication: Product used for unknown indication
     Dosage: 5 MILLIGRAM
     Route: 048
     Dates: start: 20090521
  4. DILTIAZEM [Concomitant]
     Active Substance: DILTIAZEM
     Indication: Product used for unknown indication
     Dosage: 20 MILLIGRAM
     Route: 061
     Dates: start: 20200109
  5. ACETAMINOPHEN [Concomitant]
     Active Substance: ACETAMINOPHEN
     Indication: Prophylaxis
     Dosage: 600 MILLIGRAM
     Route: 048
     Dates: start: 20210224

REACTIONS (1)
  - Colonic fistula [Recovered/Resolved]

NARRATIVE: CASE EVENT DATE: 20210331
